FAERS Safety Report 9833229 (Version 1)
Quarter: 2014Q1

REPORT INFORMATION
  Report Type: Spontaneous
  Country: IT (occurrence: IT)
  Receive Date: 20140121
  Receipt Date: 20140121
  Transmission Date: 20141002
  Serious: Yes (Other)
  Sender: FDA-Public Use
  Company Number: ALCN2014IT000642

PATIENT
  Age: 74 Year
  Sex: Female

DRUGS (5)
  1. TIMOLOL [Suspect]
     Indication: GLAUCOMA
     Dosage: UNK, BID
     Route: 047
  2. DORZOLAMIDE [Suspect]
     Indication: GLAUCOMA
     Dosage: 1 DF, BID
     Route: 047
  3. TAFLUPROST [Suspect]
     Indication: GLAUCOMA
     Dosage: 1 DF, QD
     Route: 047
  4. ACETAZOLAMIDE [Suspect]
     Indication: GLAUCOMA
     Dosage: 250 MG, TID
     Route: 048
  5. PILOCARPINE [Suspect]
     Indication: INTRAOCULAR PRESSURE INCREASED
     Dosage: 1 %, TID
     Route: 047

REACTIONS (1)
  - Drug ineffective [Recovered/Resolved]
